FAERS Safety Report 4933143-4 (Version None)
Quarter: 2006Q1

REPORT INFORMATION
  Report Type: 
  Country: None (occurrence: None)
  Receive Date: 20060301
  Receipt Date: 20060301
  Transmission Date: 20060701
  Serious: Yes (Congenital Anomaly)
  Sender: FDA-Public Use
  Company Number: None

PATIENT
  Sex: Male
  Weight: 2.5 kg

DRUGS (1)
  1. VALPROATE SODIUM [Suspect]
     Indication: EPILEPSY
     Dosage: 500MG BID PO   TAKEN BY MOTHER THROUGHOUT PREGNANCY
     Route: 048

REACTIONS (8)
  - CONGENITAL ANOMALY [None]
  - DRUG EXPOSURE DURING PREGNANCY [None]
  - FOETAL DISORDER [None]
  - FOETAL VALPROATE SYNDROME [None]
  - HAND DEFORMITY [None]
  - HYPOSPADIAS [None]
  - PECTUS EXCAVATUM [None]
  - SINGLE UMBILICAL ARTERY [None]
